FAERS Safety Report 7919275-7 (Version None)
Quarter: 2011Q4

REPORT INFORMATION
  Report Type: 
  Country: None (occurrence: None)
  Receive Date: 20111115
  Receipt Date: 20111115
  Transmission Date: 20120403
  Serious: Yes (Hospitalization)
  Sender: FDA-Public Use
  Company Number: None

PATIENT
  Age: 67 Year
  Sex: Female
  Weight: 48 kg

DRUGS (16)
  1. ABRAXANE [Suspect]
     Indication: BREAST CANCER
     Dosage: 144MG WEEKLY IV
     Route: 042
     Dates: start: 20110902, end: 20111101
  2. M.V.I. [Concomitant]
  3. ASPIRIN [Concomitant]
  4. ASMANEX TWISTHALER [Concomitant]
  5. SPIRIVA [Concomitant]
  6. RANITIDINE [Concomitant]
  7. ALENDRONATE SODIUM [Concomitant]
  8. IMODIUM [Concomitant]
  9. CARBOPLATIN [Suspect]
     Indication: BREAST CANCER
     Dosage: 404MG EVERY 3 WKS  9/2, 9/27, 10/25/11
  10. METAMUCIL-2 [Concomitant]
  11. COMPAZINE [Concomitant]
  12. FIORICET [Concomitant]
  13. POTASSIUM CHLORIDE [Concomitant]
  14. KYTRIL [Concomitant]
  15. ALBUTEROL [Concomitant]
  16. ATIVAN [Concomitant]

REACTIONS (4)
  - DIARRHOEA [None]
  - NEUTROPENIA [None]
  - NAUSEA [None]
  - URINARY TRACT INFECTION [None]
